FAERS Safety Report 8504140 (Version 2)
Quarter: 2013Q1

REPORT INFORMATION
  Report Type: Spontaneous
  Country: FR (occurrence: FR)
  Receive Date: 20120411
  Receipt Date: 20130110
  Transmission Date: 20140127
  Serious: Yes (Hospitalization)
  Sender: FDA-Public Use
  Company Number: FR-ROCHE-1056064

PATIENT
  Age: 48 Year
  Sex: Female

DRUGS (1)
  1. PEGASYS [Suspect]
     Indication: HEPATITIS D
     Route: 058
     Dates: start: 20111025, end: 20120201

REACTIONS (5)
  - Thrombocytopenia [Recovering/Resolving]
  - Menometrorrhagia [Recovered/Resolved]
  - Gingival bleeding [Recovered/Resolved]
  - Purpura [Recovered/Resolved]
  - Anaemia [Recovered/Resolved]
